FAERS Safety Report 8208907-4 (Version None)
Quarter: 2012Q1

REPORT INFORMATION
  Report Type: 
  Country: None (occurrence: None)
  Receive Date: 20120314
  Receipt Date: 20120305
  Transmission Date: 20120608
  Serious: Yes (Hospitalization)
  Sender: FDA-Public Use
  Company Number: FR-ASTRAZENECA-2011SE33016

PATIENT
  Sex: Female

DRUGS (3)
  1. CRESTOR [Suspect]
     Route: 048
  2. CRESTOR [Suspect]
     Route: 048
     Dates: start: 20110501, end: 20120201
  3. CRESTOR [Suspect]
     Route: 048
     Dates: end: 20110501

REACTIONS (2)
  - ALOPECIA [None]
  - TRANSIENT ISCHAEMIC ATTACK [None]
